FAERS Safety Report 9456653 (Version 1)
Quarter: 2013Q3

REPORT INFORMATION
  Report Type: Spontaneous
  Country: US (occurrence: US)
  Receive Date: 20130813
  Receipt Date: 20130813
  Transmission Date: 20140515
  Serious: Yes (Other)
  Sender: FDA-Public Use
  Company Number: US-TEVA-424637USA

PATIENT
  Age: 72 Year
  Sex: Female
  Weight: 46.31 kg

DRUGS (3)
  1. PROAIR HFA [Suspect]
     Indication: ASTHMA
  2. SYMBICORT [Concomitant]
  3. SINGULAIR [Concomitant]
     Indication: HYPERSENSITIVITY

REACTIONS (2)
  - Malignant melanoma [Not Recovered/Not Resolved]
  - Expired drug administered [Unknown]
